FAERS Safety Report 10480099 (Version 3)
Quarter: 2015Q2

REPORT INFORMATION
  Report Type: Report from Study
  Country: US (occurrence: US)
  Receive Date: 20140929
  Receipt Date: 20150410
  Transmission Date: 20150821
  Serious: Yes (Hospitalization)
  Sender: FDA-Public Use
  Company Number: US-BIOGENIDEC-2014BI098923

PATIENT
  Sex: Female

DRUGS (1)
  1. TYSABRI [Suspect]
     Active Substance: NATALIZUMAB
     Indication: MULTIPLE SCLEROSIS
     Route: 042
     Dates: start: 20121022, end: 20140903

REACTIONS (14)
  - Anaemia [Recovered/Resolved]
  - Fall [Recovered/Resolved]
  - Tendon injury [Recovered/Resolved]
  - Asthenia [Recovered/Resolved]
  - Adenomyosis [Recovered/Resolved]
  - Polymenorrhoea [Recovered/Resolved]
  - Pain [Recovered/Resolved]
  - Contusion [Recovered/Resolved]
  - Menorrhagia [Recovered/Resolved]
  - Fatigue [Recovered/Resolved]
  - Ligament injury [Recovered/Resolved]
  - Lower extremity mass [Recovered/Resolved]
  - Malaise [Unknown]
  - Post procedural complication [Unknown]

NARRATIVE: CASE EVENT DATE: 2014
